FAERS Safety Report 10243800 (Version 2)
Quarter: 2014Q2

REPORT INFORMATION
  Report Type: Spontaneous
  Country: US (occurrence: US)
  Receive Date: 20140618
  Receipt Date: 20140618
  Transmission Date: 20141212
  Serious: Yes (Death)
  Sender: FDA-Public Use
  Company Number: US-ASTRAZENECA-2014SE39460

PATIENT
  Age: 82 Year
  Sex: Female
  Weight: 66.7 kg

DRUGS (3)
  1. PULMICORT FLEXHALER [Suspect]
     Indication: CHRONIC OBSTRUCTIVE PULMONARY DISEASE
     Dosage: 180 MCG, 2 PUFFS BID
     Route: 055
  2. CRESTOR [Suspect]
     Indication: BLOOD CHOLESTEROL ABNORMAL
     Route: 048
  3. OTHER(S) - UNSPECIFIED [Concomitant]
     Dosage: UNKNOWN UNK

REACTIONS (5)
  - Septic shock [Fatal]
  - Clostridium difficile infection [Fatal]
  - Nerve compression [Unknown]
  - Tremor [Unknown]
  - Off label use [Unknown]
